FAERS Safety Report 25709879 (Version 1)
Quarter: 2025Q3

REPORT INFORMATION
  Report Type: Spontaneous
  Country: US (occurrence: None)
  Receive Date: 20250820
  Receipt Date: 20250820
  Transmission Date: 20251021
  Serious: No
  Sender: FDA-CTU
  Company Number: None

PATIENT
  Age: 61 Year
  Sex: Male

DRUGS (11)
  1. DOVATO [Suspect]
     Active Substance: DOLUTEGRAVIR SODIUM\LAMIVUDINE
     Indication: HIV infection
     Dosage: 1 TABLET DAILY ORAL
     Route: 048
     Dates: start: 202502
  2. LYUMJEV [Concomitant]
     Active Substance: INSULIN LISPRO-AABC
  3. sucralafate [Concomitant]
  4. TOUJEO [Concomitant]
     Active Substance: INSULIN GLARGINE
  5. ACETAMINOPHEN [Concomitant]
     Active Substance: ACETAMINOPHEN
  6. IBUPROFEN [Concomitant]
     Active Substance: IBUPROFEN
  7. ALBUTEROL [Concomitant]
     Active Substance: ALBUTEROL
  8. FENOFIBRATE [Concomitant]
     Active Substance: FENOFIBRATE
  9. NITROGLYCERIN [Concomitant]
     Active Substance: NITROGLYCERIN
  10. ROSUVASTATIN [Concomitant]
     Active Substance: ROSUVASTATIN
  11. ASPIRIN [Concomitant]
     Active Substance: ASPIRIN

REACTIONS (2)
  - Pancreatitis [None]
  - Aspiration [None]

NARRATIVE: CASE EVENT DATE: 20250719
